FAERS Safety Report 13868417 (Version 1)
Quarter: 2017Q3

REPORT INFORMATION
  Report Type: Spontaneous
  Country: US (occurrence: US)
  Receive Date: 20170815
  Receipt Date: 20170815
  Transmission Date: 20171127
  Serious: No
  Sender: FDA-Public Use
  Company Number: GXBR2017US000833

PATIENT
  Age: 76 Year
  Sex: Female

DRUGS (1)
  1. ENALAPRIL MALEATE TABLETS USP [Suspect]
     Active Substance: ENALAPRIL MALEATE
     Indication: HYPERTENSION
     Dosage: 5 MG, UNK
     Route: 048

REACTIONS (1)
  - Gastric disorder [Recovered/Resolved]
